FAERS Safety Report 7316058-6 (Version None)
Quarter: 2011Q1

REPORT INFORMATION
  Report Type: 
  Country: None (occurrence: None)
  Receive Date: 20110225
  Receipt Date: 20110214
  Transmission Date: 20110831
  Serious: Yes (Hospitalization)
  Sender: FDA-Public Use
  Company Number: FR-PFIZER INC-2011039203

PATIENT
  Age: 92 Year
  Sex: Male

DRUGS (8)
  1. CORDARONE [Suspect]
     Indication: ARRHYTHMIA
     Dosage: 200 MILLIGRAM(S);DAILY
     Route: 048
     Dates: start: 20090101, end: 20100729
  2. XATRAL [Concomitant]
     Dosage: UNK
     Dates: end: 20100729
  3. FLUCONAZOLE [Suspect]
     Indication: FUNGAL INFECTION
     Dosage: UNKNOWN
     Route: 048
     Dates: start: 20100707, end: 20100729
  4. ESOMEPRAZOLE [Concomitant]
  5. LASIX [Concomitant]
  6. GAVISCON [Concomitant]
     Dosage: UNK
     Dates: end: 20100729
  7. TADENAN [Concomitant]
     Dosage: UNK
     Dates: end: 20100729
  8. SPECIAFOLDINE [Concomitant]
     Dosage: UNK
     Dates: end: 20100729

REACTIONS (1)
  - BRADYCARDIA [None]
